FAERS Safety Report 13264271 (Version 1)
Quarter: 2017Q1

REPORT INFORMATION
  Report Type: Spontaneous
  Country: US (occurrence: US)
  Receive Date: 20170223
  Receipt Date: 20170223
  Transmission Date: 20170428
  Serious: No
  Sender: FDA-Public Use
  Company Number: None

PATIENT
  Sex: Female

DRUGS (12)
  1. LEVOTHYROXINE. [Concomitant]
     Active Substance: LEVOTHYROXINE
  2. ALPRAZOLAM. [Concomitant]
     Active Substance: ALPRAZOLAM
  3. CIRPOFLOXACIN HCL [Suspect]
     Active Substance: CIPROFLOXACIN HYDROCHLORIDE
     Route: 048
  4. DIFLUSINAL [Concomitant]
  5. TOPIRAMATE. [Concomitant]
     Active Substance: TOPIRAMATE
  6. INHALER [Concomitant]
     Active Substance: UNSPECIFIED INGREDIENT
  7. PHENAZOPYRIDINE. [Suspect]
     Active Substance: PHENAZOPYRIDINE
     Indication: BLADDER DISORDER
     Dosage: ?          QUANTITY:3X IT)??3;?
     Route: 048
     Dates: start: 20170127, end: 20170129
  8. VITAMIN D3 [Concomitant]
     Active Substance: CHOLECALCIFEROL
  9. DAILY WOMENS VITAMIN [Concomitant]
  10. ASPIRIN. [Concomitant]
     Active Substance: ASPIRIN
  11. DOCUSEL [Concomitant]
  12. ESTRACE [Concomitant]
     Active Substance: ESTRADIOL

REACTIONS (12)
  - Cerebrovascular accident [None]
  - Vomiting [None]
  - Vision blurred [None]
  - General symptom [None]
  - Clostridium difficile colitis [None]
  - Tendon disorder [None]
  - Headache [None]
  - Sinusitis [None]
  - Dizziness [None]
  - Dysphagia [None]
  - Fungal infection [None]
  - Muscular weakness [None]
